FAERS Safety Report 8161738 (Version 2)
Quarter: 2012Q4

REPORT INFORMATION
  Report Type: 
  Country: MX (occurrence: MX)
  Receive Date: 20110929
  Receipt Date: 20120910
  Transmission Date: 20130627
  Serious: Yes (Hospitalization)
  Sender: FDA-Public Use
  Company Number: PHHY2011MX85679

PATIENT
  Age: 79 Year
  Sex: Female

DRUGS (8)
  1. ACLASTA [Suspect]
     Indication: OSTEOPOROSIS
     Dosage: 5 mg, yearly
     Route: 042
     Dates: start: 201109
  2. METFORMIN [Concomitant]
     Indication: DIABETES MELLITUS
     Dosage: 3 tablets (850 mg) daily
  3. INSULIN [Concomitant]
     Indication: DIABETES MELLITUS
     Dosage: 2 injections daily (40 IU at morning and 20 IU at night)
  4. CHLORTALIDONE [Concomitant]
     Dosage: 1 tablet daily
  5. LOSARTAN [Concomitant]
     Indication: HYPERTENSION
     Dosage: 1 tablet daily
  6. FLUNARIZINE [Concomitant]
     Dosage: 2 tablets daily
  7. CLOPIDOGREL [Concomitant]
     Dosage: 2 tablets daily
  8. GABAPENTIN [Concomitant]
     Dosage: 1 tablet daily

REACTIONS (8)
  - Oral discomfort [Recovered/Resolved]
  - Drooling [Recovered/Resolved]
  - Hallucination [Recovered/Resolved]
  - Abasia [Recovered/Resolved]
  - Dyspepsia [Recovered/Resolved]
  - Dizziness [Recovered/Resolved]
  - Abdominal pain upper [Recovered/Resolved]
  - Crying [Recovered/Resolved]
